FAERS Safety Report 6653858-X (Version None)
Quarter: 2010Q1

REPORT INFORMATION
  Report Type: 
  Country: None (occurrence: None)
  Receive Date: 20100326
  Receipt Date: 20100318
  Transmission Date: 20100710
  Serious: Yes (Other)
  Sender: FDA-Public Use
  Company Number: Z0003078A

PATIENT
  Sex: Male
  Weight: 96.5 kg

DRUGS (2)
  1. PAZOPANIB [Suspect]
     Indication: RENAL CELL CARCINOMA
     Dosage: 800MG PER DAY
     Route: 048
     Dates: start: 20090914
  2. AMLODIPINO [Suspect]
     Dosage: 10MG PER DAY
     Route: 048
     Dates: start: 20100114

REACTIONS (2)
  - ALANINE AMINOTRANSFERASE INCREASED [None]
  - GAMMA-GLUTAMYLTRANSFERASE INCREASED [None]
